FAERS Safety Report 8039747-7 (Version None)
Quarter: 2012Q1

REPORT INFORMATION
  Report Type: 
  Country: None (occurrence: None)
  Receive Date: 20120111
  Receipt Date: 20111216
  Transmission Date: 20120608
  Serious: No
  Sender: FDA-Public Use
  Company Number: US-AMGEN-USASP2011067204

PATIENT
  Age: 35 Year
  Sex: Male

DRUGS (2)
  1. ENBREL [Suspect]
     Indication: JUVENILE ARTHRITIS
     Dosage: 50 MG, QWK
     Dates: start: 20110601
  2. ENBREL [Suspect]
     Indication: PRODUCT USED FOR UNKNOWN INDICATION

REACTIONS (4)
  - LOCALISED INFECTION [None]
  - SPLINTER [None]
  - LACERATION [None]
  - FALL [None]
